FAERS Safety Report 5757368-3 (Version None)
Quarter: 2008Q2

REPORT INFORMATION
  Report Type: 
  Country: None (occurrence: None)
  Receive Date: 20080603
  Receipt Date: 20080523
  Transmission Date: 20081010
  Serious: Yes (Other)
  Sender: FDA-Public Use
  Company Number: BE-SANOFI-SYNTHELABO-A01200714310

PATIENT
  Sex: Female

DRUGS (1)
  1. ELOXATIN [Suspect]
     Indication: COLON CANCER
     Route: 033
     Dates: start: 20071114, end: 20071114

REACTIONS (2)
  - DIPLEGIA [None]
  - NEUROPATHY PERIPHERAL [None]
